APPROVED DRUG PRODUCT: TERIFLUNOMIDE
Active Ingredient: TERIFLUNOMIDE
Strength: 7MG
Dosage Form/Route: TABLET;ORAL
Application: A209690 | Product #001 | TE Code: AB
Applicant: ACCORD HEALTHCARE INC
Approved: Jan 7, 2019 | RLD: No | RS: No | Type: RX